FAERS Safety Report 24580947 (Version 1)
Quarter: 2024Q4

REPORT INFORMATION
  Report Type: Spontaneous
  Country: US (occurrence: None)
  Receive Date: 20241105
  Receipt Date: 20241105
  Transmission Date: 20250114
  Serious: Yes (Disabling)
  Sender: Public
  Company Number: None

PATIENT
  Age: 62 Year
  Sex: Female
  Weight: 47.25 kg

DRUGS (8)
  1. REFRESH OPTIVE MEGA-3 [Suspect]
     Active Substance: CARBOXYMETHYLCELLULOSE SODIUM\GLYCERIN\POLYSORBATE 80
     Indication: Dry eye
     Dosage: OTHER QUANTITY : 30 CONTAINERS;?FREQUENCY : AS NEEDED;?
     Route: 047
     Dates: start: 20241007, end: 20241010
  2. REVLIMID [Concomitant]
     Active Substance: LENALIDOMIDE
  3. Glycinate [Concomitant]
  4. Calcium Citrate plus D3 [Concomitant]
  5. POTASSIUM CHLORIDE [Concomitant]
     Active Substance: POTASSIUM CHLORIDE
  6. SELENIUM [Concomitant]
     Active Substance: SELENIUM
  7. ASPIRIN [Concomitant]
     Active Substance: ASPIRIN
  8. MULTI-VITAMIN [Concomitant]
     Active Substance: .ALPHA.-TOCOPHEROL ACETATE, DL-\ASCORBIC ACID\CYANOCOBALAMIN\FLUORIDE ION\FOLIC ACID\NIACIN\PYRIDOXI

REACTIONS (4)
  - Ocular discomfort [None]
  - Ocular hyperaemia [None]
  - Vision blurred [None]
  - Eye inflammation [None]

NARRATIVE: CASE EVENT DATE: 20241007
